FAERS Safety Report 23783545 (Version 1)
Quarter: 2024Q2

REPORT INFORMATION
  Report Type: Spontaneous
  Country: US (occurrence: US)
  Receive Date: 20240425
  Receipt Date: 20240425
  Transmission Date: 20240716
  Serious: No
  Sender: FDA-Public Use
  Company Number: US-PFIZER INC-202400022875

PATIENT
  Age: 62 Year
  Sex: Male

DRUGS (2)
  1. CIBINQO [Suspect]
     Active Substance: ABROCITINIB
     Indication: Dermatitis atopic
     Dosage: 50 MG, 1X/DAY (TAKE 1/2 TABLET ONCE DAILY)
     Route: 048
  2. CIBINQO [Suspect]
     Active Substance: ABROCITINIB
     Indication: Eczema
     Dosage: 50 MG

REACTIONS (2)
  - Abdominal discomfort [Unknown]
  - Product prescribing error [Unknown]
